FAERS Safety Report 14116097 (Version 2)
Quarter: 2017Q4

REPORT INFORMATION
  Report Type: Report from Study
  Country: US (occurrence: US)
  Receive Date: 20171023
  Receipt Date: 20171117
  Transmission Date: 20180321
  Serious: Yes (Hospitalization, Other)
  Sender: FDA-Public Use
  Company Number: US-ALEXION PHARMACEUTICALS INC.-A201711418

PATIENT
  Sex: Male

DRUGS (1)
  1. SOLIRIS [Suspect]
     Active Substance: ECULIZUMAB
     Indication: PAROXYSMAL NOCTURNAL HAEMOGLOBINURIA
     Dosage: 900 MG, Q2W
     Route: 065

REACTIONS (5)
  - Cholangiocarcinoma [Unknown]
  - Inappropriate schedule of drug administration [Recovered/Resolved]
  - Large intestinal obstruction [Unknown]
  - Incorrect dose administered [Recovered/Resolved]
  - Hepatic cancer [Unknown]
